FAERS Safety Report 17015264 (Version 1)
Quarter: 2019Q4

REPORT INFORMATION
  Report Type: Spontaneous
  Country: US (occurrence: US)
  Receive Date: 20191108
  Receipt Date: 20191108
  Transmission Date: 20200122
  Serious: Yes (Life-Threatening)
  Sender: FDA-Public Use
  Company Number: None

PATIENT
  Age: 47 Year
  Sex: Female
  Weight: 92.1 kg

DRUGS (4)
  1. IRINOTECAN [Concomitant]
     Active Substance: IRINOTECAN
     Dates: start: 20190731
  2. OXALIPLATIN. [Suspect]
     Active Substance: OXALIPLATIN
     Indication: PANCREATIC CARCINOMA METASTATIC
     Dosage: ?          OTHER FREQUENCY:EVERY 14 DAYS;?
     Route: 042
     Dates: start: 20190731, end: 20191105
  3. LEUCOVORIN. [Concomitant]
     Active Substance: LEUCOVORIN
     Dates: start: 20190731
  4. FLUOROURACIL. [Concomitant]
     Active Substance: FLUOROURACIL
     Dates: start: 20190731

REACTIONS (5)
  - Feeling hot [None]
  - Flushing [None]
  - Infusion related reaction [None]
  - Rash erythematous [None]
  - Rash pruritic [None]

NARRATIVE: CASE EVENT DATE: 20191105
